FAERS Safety Report 7012277-7 (Version None)
Quarter: 2010Q3

REPORT INFORMATION
  Report Type: 
  Country: None (occurrence: None)
  Receive Date: 20100910
  Receipt Date: 20100222
  Transmission Date: 20110219
  Serious: Yes (Hospitalization)
  Sender: FDA-Public Use
  Company Number: 1000011987

PATIENT
  Age: 22 Year
  Sex: Female

DRUGS (10)
  1. CELEXA [Suspect]
     Indication: DEPRESSION
     Dosage: 60 MG (20 MG, 3 IN 1 D),ORAL; 600 MG (600 MG,1 IN 1 ONCE),ORAL
     Route: 048
     Dates: start: 20100208, end: 20100221
  2. CELEXA [Suspect]
     Indication: TACHYPHRENIA
     Dosage: 60 MG (20 MG, 3 IN 1 D),ORAL; 600 MG (600 MG,1 IN 1 ONCE),ORAL
     Route: 048
     Dates: start: 20100208, end: 20100221
  3. CELEXA [Suspect]
     Indication: DEPRESSION
     Dosage: 60 MG (20 MG, 3 IN 1 D),ORAL; 600 MG (600 MG,1 IN 1 ONCE),ORAL
     Route: 048
     Dates: start: 20100222, end: 20100222
  4. CELEXA [Suspect]
     Indication: TACHYPHRENIA
     Dosage: 60 MG (20 MG, 3 IN 1 D),ORAL; 600 MG (600 MG,1 IN 1 ONCE),ORAL
     Route: 048
     Dates: start: 20100222, end: 20100222
  5. ZOCOR [Suspect]
     Dosage: 20 TABLETS 91 IN 1 ONCE),ORAL
     Route: 048
     Dates: start: 20100221, end: 20100221
  6. RISPERDAL [Concomitant]
  7. SEROQUEL [Concomitant]
  8. TEGRETOL [Concomitant]
  9. XANAX [Concomitant]
  10. KLONOPIN [Concomitant]

REACTIONS (3)
  - INTENTIONAL OVERDOSE [None]
  - SOMNOLENCE [None]
  - SUICIDE ATTEMPT [None]
